FAERS Safety Report 7342090-2 (Version None)
Quarter: 2011Q1

REPORT INFORMATION
  Report Type: 
  Country: None (occurrence: None)
  Receive Date: 20110309
  Receipt Date: 20110228
  Transmission Date: 20110831
  Serious: Yes (Other)
  Sender: FDA-Public Use
  Company Number: DE-ABBOTT-11P-062-0709727-00

PATIENT
  Sex: Male

DRUGS (1)
  1. ENANTONE MONATSDEPOT [Suspect]
     Indication: PRECOCIOUS PUBERTY
     Route: 058
     Dates: start: 20080301

REACTIONS (1)
  - OSTEOPOROSIS [None]
